FAERS Safety Report 11630789 (Version 1)
Quarter: 2015Q4

REPORT INFORMATION
  Report Type: Spontaneous
  Country: US (occurrence: None)
  Receive Date: 20151014
  Receipt Date: 20151014
  Transmission Date: 20160304
  Serious: Yes (Other)
  Sender: FDA-Public Use
  Company Number: US-MDT-ADR-2015-01956

PATIENT
  Age: 59 Year
  Sex: Male

DRUGS (2)
  1. ANTIBIOTICS [Suspect]
     Active Substance: UNSPECIFIED INGREDIENT
  2. BACLOFEN INTRATHECAL [Suspect]
     Active Substance: BACLOFEN
     Indication: MUSCLE SPASTICITY

REACTIONS (13)
  - Head injury [None]
  - Lower respiratory tract infection [None]
  - Disease progression [None]
  - Pain in extremity [None]
  - Chronic obstructive pulmonary disease [None]
  - Weight decreased [None]
  - Pneumonia [None]
  - Cholelithiasis [None]
  - Pulmonary valve disease [None]
  - Hypophagia [None]
  - Cardiac failure congestive [None]
  - Pain [None]
  - Intestinal obstruction [None]
